FAERS Safety Report 8943204 (Version 2)
Quarter: 2013Q3

REPORT INFORMATION
  Report Type: Spontaneous
  Country: JP (occurrence: JP)
  Receive Date: 20121204
  Receipt Date: 20130920
  Transmission Date: 20140515
  Serious: Yes (Other)
  Sender: FDA-Public Use
  Company Number: PHHY2012JP110857

PATIENT
  Age: 76 Year
  Sex: Male

DRUGS (6)
  1. METHYLPREDNISOLONE [Suspect]
     Indication: GLOMERULONEPHRITIS MEMBRANOUS
     Dosage: 0.5 G,  ON DAY 03
     Route: 042
  2. METHYLPREDNISOLONE [Suspect]
     Dosage: 0.5 G, PER DAY ON DAY 36
     Route: 042
  3. PREDNISOLONE SODIUM PHOSPHATE [Suspect]
     Indication: GLOMERULONEPHRITIS MEMBRANOUS
     Dosage: 50 MG, DAY 7
  4. CICLOSPORIN [Suspect]
     Indication: GLOMERULONEPHRITIS MEMBRANOUS
     Dosage: 75 MG, BID
  5. CICLOSPORIN [Suspect]
     Dosage: 200 MG, PER DAY
  6. PRAVASTATIN [Concomitant]
     Dosage: 10 MG, QD

REACTIONS (7)
  - Drug resistance [Unknown]
  - Nephrotic syndrome [Not Recovered/Not Resolved]
  - Glomerulonephritis membranous [Recovered/Resolved]
  - Proteinuria [Recovered/Resolved]
  - Renal impairment [Recovered/Resolved]
  - Generalised oedema [Recovered/Resolved]
  - Hypoalbuminaemia [Recovered/Resolved]
